FAERS Safety Report 16759605 (Version 5)
Quarter: 2019Q4

REPORT INFORMATION
  Report Type: Report from Study
  Country: US (occurrence: US)
  Receive Date: 20190830
  Receipt Date: 20191212
  Transmission Date: 20200122
  Serious: Yes (Hospitalization)
  Sender: FDA-Public Use
  Company Number: US-TAIHO ONCOLOGY  INC-EU-2019-02861

PATIENT
  Age: 64 Year
  Sex: Male
  Weight: 133.93 kg

DRUGS (15)
  1. METOPROLOL. [Concomitant]
     Active Substance: METOPROLOL
     Dosage: NI
  2. AMIODARONE [Concomitant]
     Active Substance: AMIODARONE
     Dosage: NI
  3. LONSURF [Suspect]
     Active Substance: TIPIRACIL HYDROCHLORIDE\TRIFLURIDINE
     Indication: COLON CANCER METASTATIC
     Dosage: DOSE REDUCED ON UNKNOWN DATE; CURRENT CYCLE UNKNOWN
     Route: 048
     Dates: start: 20190502, end: 2019
  4. PLAVIX [Concomitant]
     Active Substance: CLOPIDOGREL BISULFATE
     Dosage: NI
  5. GABAPENTIN. [Concomitant]
     Active Substance: GABAPENTIN
     Indication: NEUROPATHY PERIPHERAL
     Dosage: NI
  6. ZYRTEC [Concomitant]
     Active Substance: CETIRIZINE HYDROCHLORIDE
     Dosage: NI
  7. LONSURF [Suspect]
     Active Substance: TIPIRACIL HYDROCHLORIDE\TRIFLURIDINE
     Indication: COLON CANCER
     Dosage: DOSE REDUCED ON UNKNOWN DATE; CURRENT CYCLE UNKNOWN
     Route: 048
     Dates: start: 2019
  8. ALLOPURINOL. [Concomitant]
     Active Substance: ALLOPURINOL
     Dosage: NI
  9. NOVOLOG [Concomitant]
     Active Substance: INSULIN ASPART
     Dosage: NI
  10. NITROGLYCERIN. [Concomitant]
     Active Substance: NITROGLYCERIN
     Dosage: SUB
  11. BABY ASA [Concomitant]
     Active Substance: ASPIRIN
     Dosage: NI
  12. IRON [Concomitant]
     Active Substance: IRON
     Dosage: NI
  13. TRESIBA FLEX [Concomitant]
     Dosage: NI
  14. CLOPIDOGREL [Concomitant]
     Active Substance: CLOPIDOGREL BISULFATE
     Dosage: NI
  15. MULTIVITAMIN [Concomitant]
     Active Substance: VITAMINS
     Dosage: NI

REACTIONS (8)
  - Infection [Unknown]
  - Urinary tract infection [Unknown]
  - Malaise [Unknown]
  - Cholecystectomy [Unknown]
  - Tooth extraction [Unknown]
  - Nephrolithiasis [Not Recovered/Not Resolved]
  - Cholelithiasis [Recovered/Resolved]
  - Gallbladder enlargement [Recovered/Resolved]

NARRATIVE: CASE EVENT DATE: 2019
